FAERS Safety Report 13105012 (Version 1)
Quarter: 2017Q1

REPORT INFORMATION
  Report Type: Spontaneous
  Country: BR (occurrence: BR)
  Receive Date: 20170111
  Receipt Date: 20170111
  Transmission Date: 20170428
  Serious: Yes (Other)
  Sender: FDA-Public Use
  Company Number: BR-GLAXOSMITHKLINE-BR2017GSK001160

PATIENT
  Sex: Female

DRUGS (1)
  1. AEROLIN [Suspect]
     Active Substance: ALBUTEROL
     Indication: ASTHMA

REACTIONS (1)
  - Asthmatic crisis [Unknown]
